FAERS Safety Report 11228853 (Version 1)
Quarter: 2015Q2

REPORT INFORMATION
  Report Type: Other
  Country: IT (occurrence: IT)
  Receive Date: 20150630
  Receipt Date: 20150630
  Transmission Date: 20150821
  Serious: Yes (Hospitalization, Disabling)
  Sender: FDA-Public Use
  Company Number: IT-MYLANLABS-2015M1020600

PATIENT

DRUGS (3)
  1. PAMIDRONIC ACID [Suspect]
     Active Substance: PAMIDRONIC ACID
     Indication: PLASMA CELL MYELOMA
     Dosage: 90 MG, MONTHLY
     Route: 042
     Dates: start: 20080915, end: 20110406
  2. VITAMINA D [Concomitant]
     Indication: VITAMIN D DEFICIENCY
     Dosage: 25 GTT
  3. ZOLEDRONIC ACID [Suspect]
     Active Substance: ZOLEDRONIC ACID
     Indication: PLASMA CELL MYELOMA
     Dosage: 4 MG, MONTHLY
     Route: 042
     Dates: start: 20110629, end: 20140601

REACTIONS (3)
  - Fistula [Unknown]
  - Abscess jaw [Unknown]
  - Jaw fracture [Unknown]

NARRATIVE: CASE EVENT DATE: 20150615
